FAERS Safety Report 12724247 (Version 1)
Quarter: 2016Q3

REPORT INFORMATION
  Report Type: Spontaneous
  Country: US (occurrence: US)
  Receive Date: 20160903
  Receipt Date: 20160903
  Transmission Date: 20161109
  Serious: Yes (Hospitalization)
  Sender: FDA-Public Use
  Company Number: None

PATIENT
  Age: 48 Year
  Sex: Female
  Weight: 79 kg

DRUGS (5)
  1. CARVEDILOL. [Concomitant]
     Active Substance: CARVEDILOL
  2. NAMENDA XR (EXTENDED RELEASE) [Concomitant]
  3. XELODA [Concomitant]
     Active Substance: CAPECITABINE
  4. MEMANTINE HYDROCHLORIDE. [Suspect]
     Active Substance: MEMANTINE HYDROCHLORIDE
     Dates: end: 20160812
  5. METFORMIN [Concomitant]
     Active Substance: METFORMIN HYDROCHLORIDE

REACTIONS (5)
  - Wound secretion [None]
  - Metastases to chest wall [None]
  - Malignant neoplasm progression [None]
  - Breast cancer metastatic [None]
  - Metastases to lung [None]

NARRATIVE: CASE EVENT DATE: 20160713
